FAERS Safety Report 4269743-7 (Version None)
Quarter: 2004Q1

REPORT INFORMATION
  Report Type: 
  Country: None (occurrence: None)
  Receive Date: 20040109
  Receipt Date: 20031231
  Transmission Date: 20041129
  Serious: Yes (Other)
  Sender: FDA-Public Use
  Company Number: 200307545

PATIENT
  Sex: Female

DRUGS (5)
  1. TYLENOL [Suspect]
     Indication: HEADACHE
     Dosage: 1300 MG ONCE PO
     Route: 048
     Dates: start: 20030401
  2. ESTRADIOL [Concomitant]
  3. VIOXX [Concomitant]
  4. ZOCOR [Concomitant]
  5. COZAAR [Concomitant]

REACTIONS (2)
  - NAUSEA [None]
  - VERTIGO [None]
